FAERS Safety Report 24685063 (Version 2)
Quarter: 2024Q4

REPORT INFORMATION
  Report Type: Spontaneous
  Country: JP (occurrence: JP)
  Receive Date: 20241202
  Receipt Date: 20241224
  Transmission Date: 20250115
  Serious: Yes (Hospitalization, Other)
  Sender: AMGEN
  Company Number: JP-AMGEN-JPNSP2024233879

PATIENT
  Age: 69 Year
  Sex: Female

DRUGS (4)
  1. EVENITY [Suspect]
     Active Substance: ROMOSOZUMAB-AQQG
     Indication: Osteoporosis
     Dosage: 210 MILLIGRAM, QMO
     Route: 058
     Dates: start: 20240711, end: 20240711
  2. PREGABALIN [Concomitant]
     Active Substance: PREGABALIN
     Indication: Analgesic therapy
     Dosage: 75 MILLIGRAM, BID
     Route: 065
     Dates: start: 20240711, end: 20240808
  3. Hypen [Concomitant]
     Indication: Analgesic therapy
     Dosage: 100 MILLIGRAM, BID
     Route: 065
     Dates: start: 20240711, end: 20240808
  4. CALONAL [Concomitant]
     Active Substance: ACETAMINOPHEN
     Indication: Analgesic therapy
     Dosage: 500 MILLIGRAM, BID
     Route: 065
     Dates: start: 20240711, end: 20240808

REACTIONS (4)
  - Subdural haematoma [Recovered/Resolved]
  - Foot fracture [Not Recovered/Not Resolved]
  - Fall [Unknown]
  - Head injury [Unknown]

NARRATIVE: CASE EVENT DATE: 20240809
